FAERS Safety Report 5797960-3 (Version None)
Quarter: 2008Q3

REPORT INFORMATION
  Report Type: 
  Country: None (occurrence: None)
  Receive Date: 20080701
  Receipt Date: 20080701
  Transmission Date: 20090109
  Serious: Yes (Life-Threatening, Hospitalization)
  Sender: FDA-Public Use
  Company Number: None

PATIENT
  Age: 34 Year
  Sex: Male
  Weight: 108 kg

DRUGS (4)
  1. ZYPREXA [Suspect]
     Indication: AGGRESSION
     Dosage: 5MG BID 047  PRIOR TO ADMISSION
  2. ZYPREXA [Suspect]
     Indication: IMPULSE-CONTROL DISORDER
     Dosage: 5MG BID 047  PRIOR TO ADMISSION
  3. ZYPREXA [Suspect]
     Indication: AGGRESSION
     Dosage: 10MG PRN 047
  4. ZYPREXA [Suspect]
     Indication: IMPULSE-CONTROL DISORDER
     Dosage: 10MG PRN 047

REACTIONS (2)
  - DIALYSIS [None]
  - PANCREATITIS ACUTE [None]
